FAERS Safety Report 9329010 (Version 1)
Quarter: 2013Q2

REPORT INFORMATION
  Report Type: Spontaneous
  Country: US (occurrence: None)
  Receive Date: 20130531
  Receipt Date: 20130531
  Transmission Date: 20140414
  Serious: Yes (Other)
  Sender: FDA-Public Use
  Company Number: 2013P1006258

PATIENT
  Age: 17 Year
  Sex: Female

DRUGS (1)
  1. BUPROPION [Suspect]
     Route: 048

REACTIONS (8)
  - Overdose [None]
  - Hypokalaemia [None]
  - Unresponsive to stimuli [None]
  - Convulsion [None]
  - Metabolic acidosis [None]
  - Hypocalcaemia [None]
  - Hypoglycaemia [None]
  - Cardiotoxicity [None]
